FAERS Safety Report 4621873-3 (Version None)
Quarter: 2005Q1

REPORT INFORMATION
  Report Type: 
  Country: None (occurrence: None)
  Receive Date: 20050329
  Receipt Date: 20050317
  Transmission Date: 20050727
  Serious: Yes (Other)
  Sender: FDA-Public Use
  Company Number: TR-SANOFI-SYNTHELABO-A01200501677

PATIENT
  Age: 56 Year
  Sex: Male

DRUGS (4)
  1. OXALIPLATIN [Suspect]
     Route: 042
  2. FLUOROURACIL [Suspect]
     Route: 042
  3. GRANISETRON [Suspect]
     Route: 042
  4. FOLINIC ACID [Concomitant]
     Route: 042

REACTIONS (1)
  - GRAND MAL CONVULSION [None]
